FAERS Safety Report 9670817 (Version 1)
Quarter: 2013Q4

REPORT INFORMATION
  Report Type: Spontaneous
  Country: BE (occurrence: BE)
  Receive Date: 20131106
  Receipt Date: 20131106
  Transmission Date: 20140711
  Serious: Yes (Other)
  Sender: FDA-Public Use
  Company Number: BE-JNJFOC-20131018916

PATIENT
  Age: 41 Year
  Sex: Male

DRUGS (10)
  1. XARELTO [Suspect]
     Indication: CEREBROVASCULAR ACCIDENT PROPHYLAXIS
     Route: 048
     Dates: start: 20121215, end: 20121227
  2. XARELTO [Suspect]
     Indication: ATRIAL FIBRILLATION
     Route: 048
     Dates: start: 20121215, end: 20121227
  3. L-THYROXINE [Concomitant]
  4. ZYLORIC [Concomitant]
  5. BEFACT [Concomitant]
  6. BURINEX [Concomitant]
  7. ALDACTONE [Concomitant]
  8. CRESTOR [Concomitant]
  9. NOBITEN [Concomitant]
  10. ATACAND [Concomitant]

REACTIONS (5)
  - Suicidal ideation [Recovered/Resolved]
  - Myalgia [Recovered/Resolved]
  - Epistaxis [Recovered/Resolved]
  - Mental disorder [Recovered/Resolved]
  - Malaise [Recovered/Resolved]
